FAERS Safety Report 6956664-1 (Version None)
Quarter: 2010Q3

REPORT INFORMATION
  Report Type: 
  Country: None (occurrence: None)
  Receive Date: 20100830
  Receipt Date: 20100816
  Transmission Date: 20110219
  Serious: No
  Sender: FDA-Public Use
  Company Number: US-PFIZER INC-2010103567

PATIENT
  Sex: Male

DRUGS (1)
  1. XALATAN [Suspect]
     Indication: OPEN ANGLE GLAUCOMA
     Dosage: UNK
     Route: 048
     Dates: start: 20020101

REACTIONS (2)
  - EYE IRRITATION [None]
  - EYE PAIN [None]
